FAERS Safety Report 5061600-1 (Version None)
Quarter: 2006Q3

REPORT INFORMATION
  Report Type: 
  Country: None (occurrence: None)
  Receive Date: 20060721
  Receipt Date: 20060705
  Transmission Date: 20061208
  Serious: Yes (Hospitalization)
  Sender: FDA-Public Use
  Company Number: DSA_28493_2006

PATIENT
  Age: 70 Year
  Sex: Male

DRUGS (23)
  1. ATIVAN [Suspect]
     Indication: ANXIETY
     Dosage: DF
  2. ATIVAN [Suspect]
     Indication: ANXIETY
     Dosage: 1 MG
     Dates: start: 20060501
  3. XANAX [Suspect]
     Indication: ANXIETY
     Dosage: 0.5 MG Q8HR PO
     Route: 048
     Dates: start: 20060101, end: 20060101
  4. XANAX [Suspect]
     Indication: ANXIETY
     Dosage: 0.5 MG Q6HR PO
     Route: 048
     Dates: start: 20060101
  5. ACETYLSALICYLIC ACID SRT [Concomitant]
  6. LUPRON [Concomitant]
  7. NILANDRON [Concomitant]
  8. TOPROL-XL [Concomitant]
  9. FOSAMAX [Concomitant]
  10. TRICOR [Concomitant]
  11. LOVASTATIN [Concomitant]
  12. ASCORBIC ACID [Concomitant]
  13. NORVASC /00972401/ [Concomitant]
  14. STUDY DRUG (AG013736) [Concomitant]
  15. INTRAVENOUS FLUIDS [Concomitant]
  16. ZOFRAN [Concomitant]
  17. POTASSIUM [Concomitant]
  18. LUNESTA [Concomitant]
  19. SALINE /00075401/ [Concomitant]
  20. LEXAPRO [Concomitant]
  21. LOPERAMIDE [Concomitant]
  22. CARBOPLATIN [Concomitant]
  23. TAXOL [Concomitant]

REACTIONS (23)
  - ANOREXIA [None]
  - ANXIETY [None]
  - ASTHENIA [None]
  - BLOOD POTASSIUM DECREASED [None]
  - BLOOD PRESSURE SYSTOLIC INCREASED [None]
  - BLOOD UREA INCREASED [None]
  - CONDITION AGGRAVATED [None]
  - CONFUSIONAL STATE [None]
  - DEHYDRATION [None]
  - DIARRHOEA [None]
  - DRUG INEFFECTIVE [None]
  - DYSPNOEA [None]
  - FATIGUE [None]
  - HAEMOGLOBIN DECREASED [None]
  - HAEMORRHOIDS [None]
  - INSOMNIA [None]
  - NEUTROPHIL COUNT DECREASED [None]
  - ORAL INTAKE REDUCED [None]
  - ORTHOSTATIC HYPOTENSION [None]
  - PALLOR [None]
  - PLATELET COUNT DECREASED [None]
  - VOMITING [None]
  - WHITE BLOOD CELL COUNT DECREASED [None]
